FAERS Safety Report 8381410 (Version 3)
Quarter: 2015Q4

REPORT INFORMATION
  Report Type: Report from Study
  Country: DE (occurrence: DE)
  Receive Date: 20120131
  Receipt Date: 20151215
  Transmission Date: 20160305
  Serious: Yes (Hospitalization)
  Sender: FDA-Public Use
  Company Number: PHHY2011DE098581

PATIENT
  Age: 37 Year
  Sex: Female

DRUGS (1)
  1. EXTAVIA [Suspect]
     Active Substance: INTERFERON BETA-1B
     Indication: MULTIPLE SCLEROSIS
     Dosage: 250 UG/ML, QOD
     Route: 058
     Dates: start: 20100329

REACTIONS (3)
  - Migraine [Unknown]
  - Fear of injection [Recovering/Resolving]
  - Borderline ovarian tumour [Recovering/Resolving]

NARRATIVE: CASE EVENT DATE: 20111031
